FAERS Safety Report 18999936 (Version 3)
Quarter: 2021Q2

REPORT INFORMATION
  Report Type: Spontaneous
  Country: US (occurrence: US)
  Receive Date: 20210311
  Receipt Date: 20210622
  Transmission Date: 20210717
  Serious: Yes (Hospitalization, Other)
  Sender: FDA-Public Use
  Company Number: US-CATALYST PHARMACEUTICALS, INC-2021CAT00023

PATIENT
  Age: 0 Year
  Sex: Female

DRUGS (4)
  1. PROGESTERONE. [Concomitant]
     Active Substance: PROGESTERONE
     Dosage: UNK
     Route: 064
  2. PYRIDOSTIGMINE [Concomitant]
     Active Substance: PYRIDOSTIGMINE
     Route: 064
  3. PRENATAL VITAMIN [Concomitant]
     Active Substance: VITAMINS
     Route: 064
  4. FIRDAPSE [Suspect]
     Active Substance: AMIFAMPRIDINE PHOSPHATE
     Dosage: 15 MG, 4X/DAY
     Route: 064
     Dates: start: 2020, end: 20200407

REACTIONS (23)
  - Gaze palsy [Unknown]
  - Ankyloglossia congenital [Recovered/Resolved]
  - Failure to thrive [Unknown]
  - Weight decrease neonatal [Recovering/Resolving]
  - Weight gain poor [Recovering/Resolving]
  - Candida infection [Recovered/Resolved]
  - Hypotonia [Unknown]
  - Gastritis [Unknown]
  - Foetal heart rate deceleration abnormality [Recovered/Resolved]
  - Poor feeding infant [Recovering/Resolving]
  - Vocal cord dysfunction [Unknown]
  - Foetal exposure during pregnancy [Recovered/Resolved]
  - Gastrooesophageal reflux disease [Not Recovered/Not Resolved]
  - Respiratory arrest [Recovered/Resolved]
  - Labial tie [Recovered/Resolved]
  - Nasal congestion [Unknown]
  - Choking [Recovered/Resolved]
  - Hiatus hernia [Not Recovered/Not Resolved]
  - Body temperature fluctuation [Recovering/Resolving]
  - Jaundice [Recovered/Resolved]
  - Sandifer^s syndrome [Unknown]
  - Productive cough [Recovered/Resolved]
  - Premature baby [Recovered/Resolved]

NARRATIVE: CASE EVENT DATE: 2020
